FAERS Safety Report 4967763-8 (Version None)
Quarter: 2006Q2

REPORT INFORMATION
  Report Type: 
  Country: None (occurrence: None)
  Receive Date: 20060410
  Receipt Date: 20051104
  Transmission Date: 20061013
  Serious: Yes (Hospitalization, Disabling)
  Sender: FDA-Public Use
  Company Number: US-MERCK-0511USA00956

PATIENT
  Age: 40 Year
  Sex: Female
  Weight: 77 kg

DRUGS (4)
  1. VIOXX [Suspect]
     Indication: PAIN
     Route: 048
     Dates: start: 19990501, end: 20040930
  2. VIOXX [Suspect]
     Route: 048
     Dates: start: 20010101, end: 20040101
  3. VIOXX [Suspect]
     Indication: ARTHRITIS
     Route: 048
     Dates: start: 19990501, end: 20040930
  4. VIOXX [Suspect]
     Route: 048
     Dates: start: 20010101, end: 20040101

REACTIONS (10)
  - ABDOMINAL PAIN [None]
  - ANHEDONIA [None]
  - BACK DISORDER [None]
  - CARDIAC VALVE DISEASE [None]
  - CHEST PAIN [None]
  - EMOTIONAL DISTRESS [None]
  - HYPERTENSION [None]
  - PAIN [None]
  - PANIC ATTACK [None]
  - POLYTRAUMATISM [None]
